FAERS Safety Report 7197345-1 (Version None)
Quarter: 2010Q4

REPORT INFORMATION
  Report Type: 
  Country: None (occurrence: None)
  Receive Date: 20101203
  Receipt Date: 20101125
  Transmission Date: 20110411
  Serious: Yes (Death)
  Sender: FDA-Public Use
  Company Number: 2010SP055347

PATIENT
  Age: 35 Year
  Sex: Female
  Weight: 82 kg

DRUGS (1)
  1. CERAZETTE (DESOGESTREL /00754001/) [Suspect]
     Indication: CONTRACEPTION
     Dosage: 75 MCG;PO
     Route: 048
     Dates: end: 20101013

REACTIONS (3)
  - ARTHROSCOPY [None]
  - DEEP VEIN THROMBOSIS [None]
  - RIGHT VENTRICULAR FAILURE [None]
